FAERS Safety Report 10716585 (Version 1)
Quarter: 2015Q1

REPORT INFORMATION
  Report Type: Spontaneous
  Country: US (occurrence: None)
  Receive Date: 20150115
  Receipt Date: 20150115
  Transmission Date: 20150721
  Serious: Yes (Other)
  Sender: FDA-Public Use
  Company Number: None

PATIENT
  Age: 80 Year
  Sex: Male
  Weight: 64.41 kg

DRUGS (1)
  1. PAIN RELIEVING ULTRA STRENGTH [Suspect]
     Active Substance: CAMPHOR (SYNTHETIC)\MENTHOL\METHYL SALICYLATE
     Indication: PRURITUS
     Dosage: ONE SPRAY AMOUNT  THREE TIMES DAILY --
     Dates: start: 20150109, end: 20150109

REACTIONS (2)
  - Chromaturia [None]
  - Urine odour abnormal [None]

NARRATIVE: CASE EVENT DATE: 20150109
